FAERS Safety Report 21280440 (Version 1)
Quarter: 2022Q3

REPORT INFORMATION
  Report Type: Report from Study
  Country: US (occurrence: US)
  Receive Date: 20220901
  Receipt Date: 20220901
  Transmission Date: 20221027
  Serious: Yes (Life-Threatening, Hospitalization)
  Sender: FDA-Public Use
  Company Number: US-DSJP-DSU-2022-131573

PATIENT
  Age: 53 Year
  Sex: Female
  Weight: 59.9 kg

DRUGS (2)
  1. FAM-TRASTUZUMAB DERUXTECAN-NXKI [Suspect]
     Active Substance: FAM-TRASTUZUMAB DERUXTECAN-NXKI
     Indication: HER2 positive breast cancer
     Dosage: 330 MG
     Route: 065
     Dates: start: 20220407, end: 20220607
  2. CERALASERTIB [Suspect]
     Active Substance: CERALASERTIB
     Indication: HER2 positive breast cancer
     Dosage: 560 MG
     Route: 065
     Dates: start: 20220407, end: 20220613

REACTIONS (1)
  - Pyrexia [Recovered/Resolved]

NARRATIVE: CASE EVENT DATE: 20220622
